FAERS Safety Report 6644399-4 (Version None)
Quarter: 2010Q1

REPORT INFORMATION
  Report Type: 
  Country: None (occurrence: None)
  Receive Date: 20100322
  Receipt Date: 20100212
  Transmission Date: 20100710
  Serious: Yes (Other)
  Sender: FDA-Public Use
  Company Number: BY-SANOFI-AVENTIS-2010SA015563

PATIENT
  Age: 50 Year
  Sex: Female

DRUGS (3)
  1. SOLOSTAR [Suspect]
     Dates: start: 20100124, end: 20100127
  2. SOLOSTAR [Suspect]
  3. APIDRA SOLOSTAR [Suspect]
     Indication: DIABETES MELLITUS
     Dosage: 3-4 TO 12 IU

REACTIONS (1)
  - BLOOD GLUCOSE FLUCTUATION [None]
